FAERS Safety Report 6092843-6 (Version None)
Quarter: 2009Q1

REPORT INFORMATION
  Report Type: 
  Country: None (occurrence: None)
  Receive Date: 20090225
  Receipt Date: 20090219
  Transmission Date: 20090719
  Serious: No
  Sender: FDA-Public Use
  Company Number: US-B.I. PHARMACEUTICALS,INC./RIDGEFIELD-2009-BP-01793BP

PATIENT
  Sex: Male

DRUGS (6)
  1. FLOMAX [Suspect]
     Indication: BENIGN PROSTATIC HYPERPLASIA
     Dosage: .4MG
     Route: 048
     Dates: start: 20080201, end: 20090219
  2. FLOMAX [Suspect]
     Indication: POLLAKIURIA
  3. ACTOS [Concomitant]
     Indication: DIABETES MELLITUS
  4. ATENOLOL [Concomitant]
     Indication: BLOOD PRESSURE INCREASED
  5. NIACIN [Concomitant]
     Indication: BLOOD CHOLESTEROL INCREASED
  6. METFORMIN [Concomitant]
     Indication: DIABETES MELLITUS

REACTIONS (4)
  - DIARRHOEA [None]
  - DIZZINESS [None]
  - HEADACHE [None]
  - SEMEN VOLUME DECREASED [None]
